FAERS Safety Report 11152449 (Version 1)
Quarter: 2015Q2

REPORT INFORMATION
  Report Type: Report from Study
  Country: GB (occurrence: GB)
  Receive Date: 20150601
  Receipt Date: 20150601
  Transmission Date: 20150821
  Serious: No
  Sender: FDA-Public Use
  Company Number: GB-JNJFOC-20150424224

PATIENT
  Sex: Male

DRUGS (1)
  1. STELARA [Suspect]
     Active Substance: USTEKINUMAB
     Indication: PSORIATIC ARTHROPATHY
     Route: 058
     Dates: start: 20131101

REACTIONS (5)
  - Hepatic enzyme decreased [Unknown]
  - Psoriasis [Unknown]
  - Alopecia [Unknown]
  - Platelet count decreased [Unknown]
  - Night sweats [Unknown]
